FAERS Safety Report 6648326-5 (Version None)
Quarter: 2010Q1

REPORT INFORMATION
  Report Type: 
  Country: None (occurrence: None)
  Receive Date: 20100319
  Receipt Date: 20100304
  Transmission Date: 20100710
  Serious: Yes (Hospitalization)
  Sender: FDA-Public Use
  Company Number: 2010000797

PATIENT
  Age: 83 Year
  Sex: Male
  Weight: 60 kg

DRUGS (11)
  1. ERLOTINIB HYDROCHLORIDE [Suspect]
     Indication: LUNG ADENOCARCINOMA
     Dosage: 150 MG, QD, ORAL, 100 MG, QD, ORAL
     Route: 048
     Dates: start: 20090706, end: 20090719
  2. ERLOTINIB HYDROCHLORIDE [Suspect]
     Indication: LUNG ADENOCARCINOMA
     Dosage: 150 MG, QD, ORAL, 100 MG, QD, ORAL
     Route: 048
     Dates: start: 20090720, end: 20091023
  3. ERLOTINIB HYDROCHLORIDE [Suspect]
     Indication: LUNG ADENOCARCINOMA
     Dosage: 150 MG, QD, ORAL, 100 MG, QD, ORAL
     Route: 048
     Dates: start: 20091109, end: 20091218
  4. NAXIAN (NAPROXEN SODIUM) [Concomitant]
  5. SIGMART (NICORANDIL) [Concomitant]
  6. JUVELA (TOCOPHEROL) [Concomitant]
  7. MUCOSLOVAN (AMBROXOL HYDROCHLORIDE) [Concomitant]
  8. RABEPRAZOLE SODIUM [Concomitant]
  9. GASMOTIN (MOSAPRIDE CITRATE) [Concomitant]
  10. FAMOTIDINE [Concomitant]
  11. MUCODYNE (CARBOCISTEINE) [Concomitant]

REACTIONS (3)
  - DECREASED APPETITE [None]
  - HYPOALBUMINAEMIA [None]
  - OEDEMA PERIPHERAL [None]
